FAERS Safety Report 24162613 (Version 1)
Quarter: 2024Q3

REPORT INFORMATION
  Report Type: Spontaneous
  Country: CN (occurrence: CN)
  Receive Date: 20240801
  Receipt Date: 20240801
  Transmission Date: 20241017
  Serious: Yes (Life-Threatening, Other)
  Sender: BAYER
  Company Number: CN-BAYER-2024A111114

PATIENT
  Age: 26 Year
  Sex: Female
  Weight: 43 kg

DRUGS (1)
  1. ULTRAVIST [Suspect]
     Active Substance: IOPROMIDE
     Indication: Computerised tomogram abdomen
     Dosage: 1 DF, ONCE
     Route: 042
     Dates: start: 20240416, end: 20240416

REACTIONS (19)
  - Anaphylactic shock [Recovering/Resolving]
  - Chest discomfort [Recovering/Resolving]
  - Dyspnoea [Recovering/Resolving]
  - Heart rate increased [Recovered/Resolved]
  - Blood pressure decreased [Recovered/Resolved]
  - Respiratory rate increased [None]
  - Electrocardiogram QT prolonged [None]
  - Erythema [Recovering/Resolving]
  - Erythema of eyelid [Recovering/Resolving]
  - Swelling of eyelid [Recovering/Resolving]
  - Swelling face [Recovering/Resolving]
  - Swelling [Recovering/Resolving]
  - Depressed mood [Recovering/Resolving]
  - Hypoaesthesia [Recovering/Resolving]
  - Nausea [Recovering/Resolving]
  - Vomiting [Recovering/Resolving]
  - Sinus tachycardia [None]
  - Tachypnoea [Recovering/Resolving]
  - Mobility decreased [Recovering/Resolving]

NARRATIVE: CASE EVENT DATE: 20240416
